FAERS Safety Report 25185217 (Version 1)
Quarter: 2025Q2

REPORT INFORMATION
  Report Type: Spontaneous
  Country: US (occurrence: None)
  Receive Date: 20250410
  Receipt Date: 20250410
  Transmission Date: 20250717
  Serious: Yes (Other)
  Sender: FDA-CTU
  Company Number: None

PATIENT
  Age: 55 Year
  Sex: Female
  Weight: 112.5 kg

DRUGS (1)
  1. EPOGEN [Suspect]
     Active Substance: ERYTHROPOIETIN
     Indication: Anaemia
     Dates: start: 20231101, end: 20250307

REACTIONS (7)
  - Feeling cold [None]
  - Dyspnoea [None]
  - Hypotension [None]
  - Dizziness [None]
  - Bone pain [None]
  - Feeling abnormal [None]
  - Neuropathy peripheral [None]

NARRATIVE: CASE EVENT DATE: 20250402
